FAERS Safety Report 10835939 (Version 1)
Quarter: 2015Q1

REPORT INFORMATION
  Report Type: Report from Study
  Country: US (occurrence: US)
  Receive Date: 20150219
  Receipt Date: 20150219
  Transmission Date: 20150721
  Serious: No
  Sender: FDA-Public Use
  Company Number: US-ABBVIE-14P-163-1202033-00

PATIENT
  Sex: Female

DRUGS (4)
  1. BIRTH CONTROL PILL [Concomitant]
     Active Substance: UNSPECIFIED INGREDIENT
     Indication: PRODUCT USED FOR UNKNOWN INDICATION
  2. METHOTREXATE [Concomitant]
     Active Substance: METHOTREXATE
     Indication: PRODUCT USED FOR UNKNOWN INDICATION
     Dosage: WEEKLY
  3. HUMIRA [Suspect]
     Active Substance: ADALIMUMAB
     Indication: RHEUMATOID ARTHRITIS
     Dates: start: 200301
  4. LOTS OF VITAMINS [Concomitant]
     Indication: PRODUCT USED FOR UNKNOWN INDICATION

REACTIONS (8)
  - Fibromyalgia [Not Recovered/Not Resolved]
  - Fungal infection [Unknown]
  - Rash macular [Unknown]
  - Injection site pustule [Recovered/Resolved]
  - Ear infection [Unknown]
  - Rash macular [Recovering/Resolving]
  - Skin infection [Unknown]
  - Urticaria [Unknown]

NARRATIVE: CASE EVENT DATE: 2012
